FAERS Safety Report 5487734-5 (Version None)
Quarter: 2007Q4

REPORT INFORMATION
  Report Type: 
  Country: None (occurrence: None)
  Receive Date: 20071001
  Receipt Date: 20060918
  Transmission Date: 20080405
  Serious: Yes (Other)
  Sender: FDA-Public Use
  Company Number: 2006VX001392

PATIENT
  Age: 60 Year
  Sex: Male
  Weight: 90.2658 kg

DRUGS (1)
  1. EFUDEX [Suspect]
     Dosage: 2 DF;BID;TOP
     Route: 061
     Dates: start: 20050101, end: 20050101

REACTIONS (2)
  - EXTERNAL EAR PAIN [None]
  - PHOTOSENSITIVITY REACTION [None]
